FAERS Safety Report 11707145 (Version 2)
Quarter: 2015Q4

REPORT INFORMATION
  Report Type: Spontaneous
  Country: US (occurrence: US)
  Receive Date: 20151106
  Receipt Date: 20151203
  Transmission Date: 20160304
  Serious: Yes (Hospitalization, Other)
  Sender: FDA-Public Use
  Company Number: US-BRISTOL-MYERS SQUIBB COMPANY-BMS-2015-076406

PATIENT
  Age: 63 Year
  Sex: Male

DRUGS (5)
  1. HYDREA [Suspect]
     Active Substance: HYDROXYUREA
     Indication: ACUTE MYELOID LEUKAEMIA
     Dosage: 500 MG, QD
     Route: 048
     Dates: start: 20151023
  2. NIVOLUMAB [Concomitant]
     Active Substance: NIVOLUMAB
     Indication: ACUTE MYELOID LEUKAEMIA
     Route: 065
  3. HYDREA [Suspect]
     Active Substance: HYDROXYUREA
     Dosage: 1.5 G, QD
     Route: 048
     Dates: start: 20151025
  4. VIDAZA [Concomitant]
     Active Substance: AZACITIDINE
     Indication: ACUTE MYELOID LEUKAEMIA
     Route: 065
  5. HYDREA [Suspect]
     Active Substance: HYDROXYUREA
     Dosage: 1.5 G, BID
     Route: 048
     Dates: start: 20151027

REACTIONS (7)
  - Pneumonitis [Unknown]
  - Febrile neutropenia [Unknown]
  - Transfusion [Unknown]
  - Hypotension [Unknown]
  - Arterial occlusive disease [Unknown]
  - Hypoglycaemia [Unknown]
  - Sepsis [Unknown]

NARRATIVE: CASE EVENT DATE: 20151023
